FAERS Safety Report 8845977 (Version 1)
Quarter: 2012Q4

REPORT INFORMATION
  Report Type: 
  Country: US (occurrence: US)
  Receive Date: 20121017
  Receipt Date: 20121017
  Transmission Date: 20130627
  Serious: Yes (Other)
  Sender: FDA-Public Use
  Company Number: US-ROCHE-1073933

PATIENT
  Sex: Male
  Weight: 66.74 kg

DRUGS (1)
  1. ACCUTANE [Suspect]
     Indication: ACNE
     Route: 065
     Dates: start: 199901, end: 199906

REACTIONS (3)
  - Inflammatory bowel disease [Unknown]
  - Crohn^s disease [Unknown]
  - Anal fissure [Unknown]
